FAERS Safety Report 7119791-4 (Version None)
Quarter: 2010Q4

REPORT INFORMATION
  Report Type: 
  Country: None (occurrence: None)
  Receive Date: 20101123
  Receipt Date: 20100819
  Transmission Date: 20110411
  Serious: No
  Sender: FDA-Public Use
  Company Number: US-BRISTOL-MYERS SQUIBB COMPANY-15248545

PATIENT
  Age: 57 Year
  Sex: Female

DRUGS (4)
  1. ONGLYZA [Suspect]
     Indication: TYPE 2 DIABETES MELLITUS
  2. MAXIDEX [Concomitant]
  3. CELEXA [Concomitant]
  4. HERBAL MIXTURE [Concomitant]

REACTIONS (1)
  - BLOOD CREATININE ABNORMAL [None]
